FAERS Safety Report 19093975 (Version 3)
Quarter: 2023Q4

REPORT INFORMATION
  Report Type: Report from Study
  Country: US (occurrence: US)
  Receive Date: 20210405
  Receipt Date: 20231130
  Transmission Date: 20240110
  Serious: Yes (Other)
  Sender: FDA-Public Use
  Company Number: US-SHIRE-US201911387

PATIENT
  Age: 39 Year
  Sex: Female
  Weight: 56 kg

DRUGS (15)
  1. HUMAN IMMUNOGLOBULIN G\HYALURONIDASE RECOMBINANT HUMAN [Suspect]
     Active Substance: HUMAN IMMUNOGLOBULIN G\HYALURONIDASE (HUMAN RECOMBINANT)
     Indication: Immunodeficiency common variable
     Dosage: 20 GRAM, Q3WEEKS
     Route: 058
     Dates: start: 20180422
  2. HUMAN IMMUNOGLOBULIN G\HYALURONIDASE RECOMBINANT HUMAN [Suspect]
     Active Substance: HUMAN IMMUNOGLOBULIN G\HYALURONIDASE (HUMAN RECOMBINANT)
     Indication: Primary immunodeficiency syndrome
  3. DIPHENHYDRAMINE [Concomitant]
     Active Substance: DIPHENHYDRAMINE
  4. EPINEPHRINE [Concomitant]
     Active Substance: EPINEPHRINE
  5. ACETAMINOPHEN [Concomitant]
     Active Substance: ACETAMINOPHEN
  6. LIDOCAINE [Concomitant]
     Active Substance: LIDOCAINE
  7. VITAFOL [Concomitant]
     Active Substance: CHOLECALCIFEROL\CYANOCOBALAMIN\FOLIC ACID\PYRIDOXINE HYDROCHLORIDE
  8. GAVISCON [Concomitant]
     Active Substance: ALUMINUM HYDROXIDE\MAGNESIUM CARBONATE
  9. CALCIUM\CHOLECALCIFEROL [Concomitant]
     Active Substance: CALCIUM\CHOLECALCIFEROL
  10. DIETARY SUPPLEMENT\MAGNESIUM OXIDE [Concomitant]
     Active Substance: DIETARY SUPPLEMENT\MAGNESIUM OXIDE
  11. OMEPRAZOLE [Concomitant]
     Active Substance: OMEPRAZOLE
  12. ASCORBIC ACID [Concomitant]
     Active Substance: ASCORBIC ACID
  13. QNASL [Concomitant]
     Active Substance: BECLOMETHASONE DIPROPIONATE
  14. CHOLECALCIFEROL\FISH OIL [Concomitant]
     Active Substance: CHOLECALCIFEROL\FISH OIL
  15. DIPHENHYDRAMINE HYDROCHLORIDE [Concomitant]
     Active Substance: DIPHENHYDRAMINE HYDROCHLORIDE

REACTIONS (9)
  - Pneumonia bacterial [Unknown]
  - COVID-19 [Unknown]
  - Pharyngitis [Unknown]
  - Sinusitis [Unknown]
  - Chronic obstructive pulmonary disease [Unknown]
  - Insurance issue [Unknown]
  - Viral infection [Not Recovered/Not Resolved]
  - Nasopharyngitis [Unknown]
  - Product dose omission issue [Unknown]

NARRATIVE: CASE EVENT DATE: 20230403
